FAERS Safety Report 6932674-5 (Version None)
Quarter: 2010Q3

REPORT INFORMATION
  Report Type: 
  Country: None (occurrence: None)
  Receive Date: 20100819
  Receipt Date: 20100818
  Transmission Date: 20110219
  Serious: Yes (Death, Life-Threatening, Hospitalization, Other)
  Sender: FDA-Public Use
  Company Number: DK-CEPHALON-2010002067

PATIENT
  Sex: Male

DRUGS (5)
  1. TRISENOX [Suspect]
     Indication: ACUTE MYELOID LEUKAEMIA
     Dates: start: 20100319, end: 20100410
  2. TRISENOX [Suspect]
     Indication: MYELODYSPLASTIC SYNDROME
  3. SIMVASTATIN [Suspect]
     Dates: end: 20100409
  4. VESANOID [Suspect]
     Indication: ACUTE MYELOID LEUKAEMIA
     Dates: start: 20100316, end: 20100410
  5. MYLOTARG [Suspect]
     Indication: ACUTE MYELOID LEUKAEMIA
     Dates: start: 20100319, end: 20100410

REACTIONS (6)
  - CLOSTRIDIUM DIFFICILE COLITIS [None]
  - MULTI-ORGAN FAILURE [None]
  - RENAL FAILURE [None]
  - RETINOIC ACID SYNDROME [None]
  - RHABDOMYOLYSIS [None]
  - SEPSIS [None]
